FAERS Safety Report 17040299 (Version 1)
Quarter: 2019Q4

REPORT INFORMATION
  Report Type: Spontaneous
  Country: US (occurrence: US)
  Receive Date: 20191117
  Receipt Date: 20191117
  Transmission Date: 20200122
  Serious: No
  Sender: FDA-Public Use
  Company Number: US-TORRENT-00007406

PATIENT
  Age: 78 Year
  Weight: 78 kg

DRUGS (2)
  1. ATENOLOL. [Suspect]
     Active Substance: ATENOLOL
     Indication: BLOOD PRESSURE MEASUREMENT
     Dosage: UNKNOWN
  2. LOSARTAN. [Suspect]
     Active Substance: LOSARTAN
     Indication: BLOOD PRESSURE MEASUREMENT

REACTIONS (3)
  - Pruritus [Not Recovered/Not Resolved]
  - Musculoskeletal pain [Unknown]
  - Malaise [Not Recovered/Not Resolved]
